FAERS Safety Report 5877545-0 (Version None)
Quarter: 2008Q3

REPORT INFORMATION
  Report Type: 
  Country: None (occurrence: None)
  Receive Date: 20080911
  Receipt Date: 20080901
  Transmission Date: 20090109
  Serious: Yes (Other)
  Sender: FDA-Public Use
  Company Number: PHHY2008DE20235

PATIENT

DRUGS (1)
  1. CYCLOSPORINE [Suspect]
     Indication: URTICARIA

REACTIONS (1)
  - RENAL HYPERTENSION [None]
